FAERS Safety Report 11327734 (Version 1)
Quarter: 2015Q3

REPORT INFORMATION
  Report Type: Report from Study
  Country: TW (occurrence: TW)
  Receive Date: 20150731
  Receipt Date: 20150731
  Transmission Date: 20151125
  Serious: Yes (Death)
  Sender: FDA-Public Use
  Company Number: TW-ROCHE-1611714

PATIENT
  Age: 73 Year
  Sex: Female
  Weight: 44.5 kg

DRUGS (1)
  1. OBINUTUZUMAB [Suspect]
     Active Substance: OBINUTUZUMAB
     Indication: LYMPHOMA
     Route: 042
     Dates: start: 20150610, end: 201507

REACTIONS (3)
  - Neutropenia [Fatal]
  - Bacteraemia [Fatal]
  - Septic shock [Fatal]

NARRATIVE: CASE EVENT DATE: 20150721
